FAERS Safety Report 5803630-5 (Version None)
Quarter: 2008Q3

REPORT INFORMATION
  Report Type: 
  Country: None (occurrence: None)
  Receive Date: 20080708
  Receipt Date: 20080630
  Transmission Date: 20090109
  Serious: Yes (Other)
  Sender: FDA-Public Use
  Company Number: GB-PFIZER INC-2008050255

PATIENT
  Age: 83 Year
  Sex: Female
  Weight: 74 kg

DRUGS (12)
  1. DOXAZOSIN MESYLATE [Suspect]
     Indication: ESSENTIAL HYPERTENSION
     Route: 048
     Dates: start: 20080124, end: 20080415
  2. AMITRIPTYLINE HCL [Concomitant]
     Dosage: DAILY DOSE:20MG
  3. AMLODIPINE [Concomitant]
     Dosage: DAILY DOSE:10MG
  4. ATENOLOL [Concomitant]
     Dosage: DAILY DOSE:50MG
  5. ATORVASTATIN [Concomitant]
     Dosage: DAILY DOSE:20MG
  6. ACETAMINOPHEN W/ CODEINE [Concomitant]
  7. FUROSEMIDE [Concomitant]
     Dosage: DAILY DOSE:40MG
  8. LORATADINE [Concomitant]
     Dosage: DAILY DOSE:10MG
  9. MIXTARD HUMAN 70/30 [Concomitant]
  10. OMEPRAZOLE [Concomitant]
     Dosage: DAILY DOSE:10MG
  11. RAMIPRIL [Concomitant]
     Dosage: DAILY DOSE:10MG
  12. KETOCONAZOLE [Concomitant]
     Route: 061

REACTIONS (1)
  - HALLUCINATION, VISUAL [None]
